FAERS Safety Report 5648582-6 (Version None)
Quarter: 2008Q1

REPORT INFORMATION
  Report Type: 
  Country: None (occurrence: None)
  Receive Date: 20080131
  Receipt Date: 20071009
  Transmission Date: 20080703
  Serious: No
  Sender: FDA-Public Use
  Company Number: US200707005391

PATIENT
  Age: 53 Year
  Sex: Female
  Weight: 98.9 kg

DRUGS (6)
  1. BYETTA [Suspect]
     Indication: TYPE 2 DIABETES MELLITUS
     Dosage: 5 UG, SUBCUTANEOUS; 10 UG, 2/D, SUBCUTANEOUS; 10 UG, 3/D, SUBCUTANEOUS
     Route: 058
     Dates: start: 20070718, end: 20070801
  2. BYETTA [Suspect]
     Indication: TYPE 2 DIABETES MELLITUS
     Dosage: 5 UG, SUBCUTANEOUS; 10 UG, 2/D, SUBCUTANEOUS; 10 UG, 3/D, SUBCUTANEOUS
     Route: 058
     Dates: start: 20070801, end: 20070901
  3. BYETTA [Suspect]
     Indication: TYPE 2 DIABETES MELLITUS
     Dosage: 5 UG, SUBCUTANEOUS; 10 UG, 2/D, SUBCUTANEOUS; 10 UG, 3/D, SUBCUTANEOUS
     Route: 058
     Dates: start: 20070901
  4. EXENATIDE 5MCG PEN, DISPOSABLE DEVICE (EXENATIDE PEN (5MCG)) PEN,DISPO [Concomitant]
  5. EXENATIDE 10MCG PEN, DISPOSABLE DEVICE (EXENATIDE PEN (10MCG))) PEN,DI [Concomitant]
  6. BYETTA [Suspect]

REACTIONS (5)
  - INJECTION SITE BRUISING [None]
  - INJECTION SITE URTICARIA [None]
  - OVERDOSE [None]
  - POLLAKIURIA [None]
  - WEIGHT DECREASED [None]
